FAERS Safety Report 25466389 (Version 1)
Quarter: 2025Q2

REPORT INFORMATION
  Report Type: Spontaneous
  Country: AU (occurrence: AU)
  Receive Date: 20250623
  Receipt Date: 20250623
  Transmission Date: 20250717
  Serious: Yes (Death, Hospitalization, Other)
  Sender: SANOFI AVENTIS
  Company Number: AU-SA-2025SA175132

PATIENT
  Age: 80 Year
  Sex: Male

DRUGS (2)
  1. LEFLUNOMIDE [Suspect]
     Active Substance: LEFLUNOMIDE
     Indication: Rheumatoid arthritis
     Route: 048
     Dates: end: 20240301
  2. METHOTREXATE [Suspect]
     Active Substance: METHOTREXATE
     Indication: Rheumatoid arthritis
     Route: 048
     Dates: end: 20240228

REACTIONS (2)
  - Thrombotic microangiopathy [Fatal]
  - Hypoxia [Fatal]

NARRATIVE: CASE EVENT DATE: 20240302
